FAERS Safety Report 5709217-7 (Version None)
Quarter: 2008Q2

REPORT INFORMATION
  Report Type: 
  Country: None (occurrence: None)
  Receive Date: 20080418
  Receipt Date: 20080409
  Transmission Date: 20081010
  Serious: Yes (Other)
  Sender: FDA-Public Use
  Company Number: GB-RB-000595-08

PATIENT
  Age: 38 Year
  Sex: Female

DRUGS (2)
  1. SUBUTEX [Suspect]
     Dosage: DOSAGE UNKNOWN
     Route: 065
     Dates: start: 20080201
  2. SUBOXONE [Suspect]
     Dosage: DOSAGE UNKNOWN
     Route: 065
     Dates: end: 20080201

REACTIONS (3)
  - ABORTION INDUCED [None]
  - DRUG EXPOSURE DURING PREGNANCY [None]
  - PARAESTHESIA [None]
